FAERS Safety Report 21566008 (Version 3)
Quarter: 2023Q2

REPORT INFORMATION
  Report Type: Spontaneous
  Country: US (occurrence: US)
  Receive Date: 20221108
  Receipt Date: 20230427
  Transmission Date: 20230722
  Serious: Yes (Hospitalization, Other)
  Sender: FDA-Public Use
  Company Number: US-TORRENT-00012068

PATIENT
  Age: 75 Year
  Sex: Male

DRUGS (4)
  1. OLANZAPINE [Suspect]
     Active Substance: OLANZAPINE
     Indication: Psychotic disorder
     Dosage: UNKNOWN
     Route: 065
  2. CLOZAPINE [Concomitant]
     Active Substance: CLOZAPINE
     Indication: Dementia with Lewy bodies
     Dosage: TITRATION
     Route: 065
  3. DONEPEZIL [Concomitant]
     Active Substance: DONEPEZIL
     Indication: Dementia with Lewy bodies
     Dosage: UNKNOWN
     Route: 065
  4. VALPROIC ACID [Concomitant]
     Active Substance: VALPROIC ACID
     Indication: Dementia with Lewy bodies
     Dosage: UNKNOWN
     Route: 065

REACTIONS (3)
  - Condition aggravated [Recovered/Resolved]
  - Cognitive disorder [Recovered/Resolved]
  - Motor dysfunction [Recovered/Resolved]
